FAERS Safety Report 6848592-7 (Version None)
Quarter: 2010Q3

REPORT INFORMATION
  Report Type: 
  Country: None (occurrence: None)
  Receive Date: 20100716
  Receipt Date: 20100712
  Transmission Date: 20110219
  Serious: Yes (Hospitalization)
  Sender: FDA-Public Use
  Company Number: US-BRISTOL-MYERS SQUIBB COMPANY-15187461

PATIENT
  Age: 59 Year
  Sex: Female

DRUGS (7)
  1. TRAZODONE HCL [Interacting]
  2. MORPHINE SULFATE [Suspect]
  3. ESCITALOPRAM [Interacting]
  4. FENTANYL [Interacting]
     Dosage: DIVIDED 8DOSES
     Route: 042
  5. ETOMIDATE [Suspect]
  6. VECURONIUM BROMIDE [Suspect]
  7. CEFAZOLIN [Suspect]

REACTIONS (3)
  - DRUG INTERACTION [None]
  - RESPIRATORY ACIDOSIS [None]
  - SEROTONIN SYNDROME [None]
